FAERS Safety Report 8430343-6 (Version None)
Quarter: 2012Q2

REPORT INFORMATION
  Report Type: 
  Country: None (occurrence: None)
  Receive Date: 20120612
  Receipt Date: 20120608
  Transmission Date: 20120825
  Serious: Yes (Hospitalization)
  Sender: FDA-Public Use
  Company Number: CA-ROXANE LABORATORIES, INC.-2012-EU-03063GD

PATIENT
  Age: 10 Year
  Sex: Male
  Weight: 44 kg

DRUGS (9)
  1. CODEINE SULFATE [Suspect]
     Indication: POSTOPERATIVE ANALGESIA
  2. ZIPRASIDONE HCL [Suspect]
  3. FLUVOXAMINE MALEATE [Concomitant]
  4. PROPOFOL [Concomitant]
     Indication: INTRAOPERATIVE CARE
  5. DIVALPROEX SODIUM [Concomitant]
  6. METHYLPHENIDATE [Concomitant]
  7. MORPHINE [Suspect]
     Indication: POSTOPERATIVE ANALGESIA
  8. FENTANYL [Suspect]
     Indication: PERIOPERATIVE ANALGESIA
  9. MORPHINE [Suspect]
     Indication: PERIOPERATIVE ANALGESIA

REACTIONS (2)
  - SEROTONIN SYNDROME [None]
  - SYNCOPE [None]
